FAERS Safety Report 16849459 (Version 1)
Quarter: 2019Q3

REPORT INFORMATION
  Report Type: Report from Study
  Country: FR (occurrence: FR)
  Receive Date: 20190925
  Receipt Date: 20190925
  Transmission Date: 20191005
  Serious: Yes (Death, Other)
  Sender: FDA-Public Use
  Company Number: PHHY2019FR117560

PATIENT
  Age: 47 Year
  Sex: Male
  Weight: 83 kg

DRUGS (1)
  1. TISAGENLECLEUCEL. [Suspect]
     Active Substance: TISAGENLECLEUCEL
     Indication: DIFFUSE LARGE B-CELL LYMPHOMA REFRACTORY
     Dosage: 2.9484 X 10^8 POSITIVE VIABLE T CELLS/KG BODY WEIGHT
     Route: 042
     Dates: start: 20190212

REACTIONS (9)
  - Cytokine release syndrome [Recovered/Resolved]
  - Aspartate aminotransferase abnormal [Recovered/Resolved]
  - Diffuse large B-cell lymphoma refractory [Fatal]
  - Malignant neoplasm progression [Fatal]
  - Alanine aminotransferase abnormal [Recovered/Resolved]
  - Procalcitonin increased [Unknown]
  - Pyrexia [Recovered/Resolved]
  - Systemic inflammatory response syndrome [Recovered/Resolved]
  - Bone marrow failure [Recovered/Resolved]

NARRATIVE: CASE EVENT DATE: 20190212
